FAERS Safety Report 14769089 (Version 1)
Quarter: 2018Q2

REPORT INFORMATION
  Report Type: Spontaneous
  Country: FR (occurrence: FR)
  Receive Date: 20180417
  Receipt Date: 20180417
  Transmission Date: 20180711
  Serious: Yes (Other)
  Sender: FDA-Public Use
  Company Number: FR-MERCK KGAA-2045865

PATIENT
  Age: 42 Year
  Sex: Female

DRUGS (1)
  1. NOVOTHYROX [Suspect]
     Active Substance: LEVOTHYROXINE SODIUM
     Indication: HYPOTHYROIDISM

REACTIONS (21)
  - Dyskinesia [Recovering/Resolving]
  - Aniridia [Recovering/Resolving]
  - Nasal dryness [Recovering/Resolving]
  - Gastrointestinal disorder [Recovering/Resolving]
  - Aggression [Recovering/Resolving]
  - Injury [Recovering/Resolving]
  - Job dissatisfaction [Recovering/Resolving]
  - Tachycardia [Recovering/Resolving]
  - Emotional disorder [Recovering/Resolving]
  - Depressed mood [Recovering/Resolving]
  - Asthenia [Recovering/Resolving]
  - Autoimmune thyroiditis [Recovering/Resolving]
  - Photophobia [Recovering/Resolving]
  - Somnolence [Recovering/Resolving]
  - Hyperhidrosis [Recovering/Resolving]
  - Irritability [Recovering/Resolving]
  - Cataract congenital [Recovering/Resolving]
  - Sinusitis [Recovering/Resolving]
  - Nystagmus [Recovering/Resolving]
  - Loss of personal independence in daily activities [Recovering/Resolving]
  - Pain in extremity [Recovering/Resolving]

NARRATIVE: CASE EVENT DATE: 201704
